FAERS Safety Report 7973628-X (Version None)
Quarter: 2011Q4

REPORT INFORMATION
  Report Type: 
  Country: None (occurrence: None)
  Receive Date: 20111213
  Receipt Date: 20111212
  Transmission Date: 20120403
  Serious: Yes (Death, Hospitalization)
  Sender: FDA-Public Use
  Company Number: DE-ROCHE-632693

PATIENT
  Sex: Female
  Weight: 74 kg

DRUGS (7)
  1. ONDANSETRON [Concomitant]
     Indication: NAUSEA
     Route: 040
     Dates: start: 20090316, end: 20090316
  2. ONDANSETRON [Concomitant]
     Route: 040
     Dates: start: 20090420, end: 20090420
  3. DEXAMETHASONE [Concomitant]
     Indication: NAUSEA
     Route: 040
     Dates: start: 20090316, end: 20090316
  4. EPIRUBICIN HYDROCHLORIDE [Suspect]
     Indication: GASTRIC CANCER
     Dosage: FREQUENCY: DAY 1.
     Route: 040
  5. OXALIPLATIN [Suspect]
     Indication: GASTRIC CANCER
     Dosage: DOSE: 200MG/170MG, ROUTE: INFUSION, FREQUENCY: DAY 1.
     Route: 042
  6. XELODA [Suspect]
     Indication: GASTRIC CANCER
     Dosage: FREQUENCY: DAILY, FOR 14 DAYS.
     Route: 048
  7. DEXAMETHASONE [Concomitant]
     Route: 040
     Dates: start: 20090420, end: 20090420

REACTIONS (4)
  - NEOPLASM MALIGNANT [None]
  - NAUSEA [None]
  - VOMITING [None]
  - GENERAL PHYSICAL HEALTH DETERIORATION [None]
